FAERS Safety Report 9264751 (Version 1)
Quarter: 2013Q2

REPORT INFORMATION
  Report Type: Spontaneous
  Country: US (occurrence: None)
  Receive Date: 20130429
  Receipt Date: 20130429
  Transmission Date: 20140414
  Serious: No
  Sender: FDA-Public Use
  Company Number: None

PATIENT
  Age: 57 Year
  Sex: Male
  Weight: 100 kg

DRUGS (2)
  1. ROPINIROLE [Suspect]
     Indication: GINGIVAL SWELLING
     Dosage: MG
     Route: 048
     Dates: start: 20120214, end: 20120530
  2. ROPINIROLE [Suspect]
     Indication: PAIN
     Dosage: MG
     Route: 048
     Dates: start: 20120214, end: 20120530

REACTIONS (1)
  - Oedema mouth [None]
